FAERS Safety Report 8345156-3 (Version None)
Quarter: 2012Q2

REPORT INFORMATION
  Report Type: 
  Country: None (occurrence: None)
  Receive Date: 20120508
  Receipt Date: 20120423
  Transmission Date: 20120825
  Serious: Yes (Other)
  Sender: FDA-Public Use
  Company Number: PHHY2012FR001154

PATIENT
  Age: 78 Year
  Sex: Male

DRUGS (3)
  1. DIGOXIN [Suspect]
     Dosage: UNK
  2. DICLOFENAC [Suspect]
     Dosage: UNK
  3. FLUINDIONE [Suspect]
     Dosage: UNK

REACTIONS (4)
  - DRUG RASH WITH EOSINOPHILIA AND SYSTEMIC SYMPTOMS [None]
  - RENAL DISORDER [None]
  - PYREXIA [None]
  - RASH [None]
